FAERS Safety Report 17614627 (Version 1)
Quarter: 2020Q2

REPORT INFORMATION
  Report Type: Spontaneous
  Country: CA (occurrence: CA)
  Receive Date: 20200402
  Receipt Date: 20200402
  Transmission Date: 20200713
  Serious: Yes (Disabling)
  Sender: FDA-Public Use
  Company Number: CA-TEVA-2020-CA-1216805

PATIENT
  Age: 56 Year
  Sex: Female
  Weight: 52 kg

DRUGS (1)
  1. ATORVASTATIN CALCIUM. [Suspect]
     Active Substance: ATORVASTATIN CALCIUM
     Indication: BLOOD CHOLESTEROL ABNORMAL
     Dosage: 10 MILLIGRAM DAILY;
     Route: 048

REACTIONS (7)
  - Arthralgia [Unknown]
  - Flatulence [Unknown]
  - Myalgia [Unknown]
  - Apathy [Unknown]
  - Asthenia [Unknown]
  - Muscular weakness [Unknown]
  - Muscle spasms [Unknown]
